FAERS Safety Report 8126119-X (Version None)
Quarter: 2012Q1

REPORT INFORMATION
  Report Type: 
  Country: None (occurrence: None)
  Receive Date: 20120209
  Receipt Date: 20120202
  Transmission Date: 20120608
  Serious: Yes (Other)
  Sender: FDA-Public Use
  Company Number: PHFR2012GB000785

PATIENT
  Sex: Female

DRUGS (3)
  1. EXELON [Suspect]
     Dosage: 4.6 MG, DAILY
     Route: 062
     Dates: start: 20120120, end: 20120126
  2. EXELON [Suspect]
     Indication: SKIN IRRITATION
     Dosage: 4.6 MG, DAILY
     Route: 062
  3. EXELON [Suspect]
     Dosage: 9.5 MG, DAILY
     Route: 062

REACTIONS (5)
  - RASH GENERALISED [None]
  - APPLICATION SITE IRRITATION [None]
  - DEMENTIA ALZHEIMER'S TYPE [None]
  - APPLICATION SITE PRURITUS [None]
  - DRUG INTOLERANCE [None]
